FAERS Safety Report 7299321-7 (Version None)
Quarter: 2010Q4

REPORT INFORMATION
  Report Type: 
  Country: None (occurrence: None)
  Receive Date: 20101223
  Receipt Date: 20100505
  Transmission Date: 20110411
  Serious: Yes (Other)
  Sender: FDA-Public Use
  Company Number: 233885USA

PATIENT
  Age: 46 Year
  Sex: Female

DRUGS (4)
  1. PARAGARD T 380A [Suspect]
     Indication: CONTRACEPTION
     Dosage: I.U.
     Dates: start: 20090501, end: 20090723
  2. PAROXETINE HYDROCHLORIDE [Concomitant]
  3. BUPROPION HCL [Concomitant]
  4. LANSOPRAZOLE [Concomitant]

REACTIONS (1)
  - MENORRHAGIA [None]
